FAERS Safety Report 6083010-0 (Version None)
Quarter: 2009Q1

REPORT INFORMATION
  Report Type: 
  Country: None (occurrence: None)
  Receive Date: 20090204
  Receipt Date: 20071214
  Transmission Date: 20090719
  Serious: Yes (Life-Threatening)
  Sender: FDA-Public Use
  Company Number: 270263

PATIENT
  Age: 71 Year
  Sex: Male

DRUGS (2)
  1. NOVOLOG [Suspect]
     Indication: TYPE 1 DIABETES MELLITUS
     Dosage: SLIDING SCALE,TID, SUBCUTANEOUS
     Route: 058
  2. LANTUS [Suspect]
     Indication: TYPE 1 DIABETES MELLITUS
     Dosage: 14 IU, QHS, SUBCUTANEOUS
     Route: 058

REACTIONS (2)
  - HYPOGLYCAEMIC UNCONSCIOUSNESS [None]
  - WRONG DRUG ADMINISTERED [None]
